FAERS Safety Report 7525316-1 (Version None)
Quarter: 2011Q2

REPORT INFORMATION
  Report Type: 
  Country: None (occurrence: None)
  Receive Date: 20110606
  Receipt Date: 20110606
  Transmission Date: 20111010
  Serious: Yes (Other)
  Sender: FDA-Public Use
  Company Number: IT-PFIZER INC-2010180715

PATIENT
  Age: 46 Year
  Sex: Female

DRUGS (2)
  1. XANAX [Concomitant]
     Dosage: 0.57 MG, UNK
     Route: 048
  2. ZOLOFT [Suspect]
     Indication: ANXIETY
     Dosage: 25 MG, 1X/DAY
     Route: 048
     Dates: start: 20101201, end: 20101202

REACTIONS (2)
  - TOXIC SKIN ERUPTION [None]
  - URTICARIA [None]
